FAERS Safety Report 4607782-4 (Version None)
Quarter: 2005Q1

REPORT INFORMATION
  Report Type: 
  Country: None (occurrence: None)
  Receive Date: 20050314
  Receipt Date: 20050308
  Transmission Date: 20050727
  Serious: Yes (Other)
  Sender: FDA-Public Use
  Company Number: FR-GLAXOSMITHKLINE-B0374340A

PATIENT
  Age: 67 Year
  Sex: Female

DRUGS (3)
  1. ZENTEL [Suspect]
     Indication: ANISAKIASIS
     Dosage: 400MG UNKNOWN
     Route: 048
     Dates: start: 20050201, end: 20050201
  2. AMLOR [Concomitant]
  3. SYMBICORT [Concomitant]

REACTIONS (1)
  - NEUROPATHY PERIPHERAL [None]
